FAERS Safety Report 10832770 (Version 1)
Quarter: 2015Q1

REPORT INFORMATION
  Report Type: Report from Study
  Country: US (occurrence: US)
  Receive Date: 20150219
  Receipt Date: 20150219
  Transmission Date: 20150721
  Serious: No
  Sender: FDA-Public Use
  Company Number: US-ABBVIE-14P-163-1197947-00

PATIENT
  Sex: Male

DRUGS (5)
  1. METHOTREXATE [Concomitant]
     Active Substance: METHOTREXATE
     Indication: PRODUCT USED FOR UNKNOWN INDICATION
  2. HUMIRA [Suspect]
     Active Substance: ADALIMUMAB
     Indication: EYE INFLAMMATION
  3. LIDOCAINE. [Suspect]
     Active Substance: LIDOCAINE
     Indication: INJECTION SITE PAIN
     Dosage: PATCH
  4. CYCLOPENTOLATE [Concomitant]
     Active Substance: CYCLOPENTOLATE
     Indication: EYE INFLAMMATION
     Dosage: TO LEFT EYE
  5. TEARISOL [Concomitant]
     Indication: EYE INFLAMMATION
     Dosage: EYE DROPS TO LEFT EYE

REACTIONS (2)
  - Drug ineffective [Unknown]
  - Injection site pain [Recovered/Resolved]
